FAERS Safety Report 22022807 (Version 4)
Quarter: 2023Q2

REPORT INFORMATION
  Report Type: Spontaneous
  Country: CA (occurrence: CA)
  Receive Date: 20230222
  Receipt Date: 20230414
  Transmission Date: 20230721
  Serious: Yes (Death)
  Sender: FDA-Public Use
  Company Number: CA-BAUSCH-BL-2023-003033

PATIENT
  Age: 33 Year
  Sex: Female

DRUGS (1)
  1. WELLBUTRIN [Suspect]
     Active Substance: BUPROPION HYDROCHLORIDE
     Indication: Product used for unknown indication
     Route: 048
     Dates: start: 20230110

REACTIONS (1)
  - Completed suicide [Fatal]

NARRATIVE: CASE EVENT DATE: 20230208
